FAERS Safety Report 5428751-0 (Version None)
Quarter: 2007Q3

REPORT INFORMATION
  Report Type: 
  Country: None (occurrence: None)
  Receive Date: 20070827
  Receipt Date: 20070827
  Transmission Date: 20080115
  Serious: Yes (Other)
  Sender: FDA-Public Use
  Company Number: None

PATIENT
  Sex: Female
  Weight: 54.8852 kg

DRUGS (1)
  1. AMLODIPINE [Suspect]
     Dosage: 10MG 1 TAB DAILY

REACTIONS (1)
  - PHARYNGEAL OEDEMA [None]
